FAERS Safety Report 9962971 (Version 1)
Quarter: 2014Q1

REPORT INFORMATION
  Report Type: Spontaneous
  Country: BR (occurrence: BR)
  Receive Date: 20140305
  Receipt Date: 20140305
  Transmission Date: 20141002
  Serious: Yes (Other)
  Sender: FDA-Public Use
  Company Number: BR-PFIZER INC-2014059404

PATIENT
  Age: 50 Year
  Sex: Female
  Weight: 55 kg

DRUGS (5)
  1. LYRICA [Suspect]
     Indication: ARTHRALGIA
     Dosage: 1 CAPSULE OF STRENGTH 75 MG, DAILY
     Route: 048
     Dates: start: 201306
  2. LYRICA [Suspect]
     Indication: PAIN
  3. BIOMAG [Concomitant]
     Indication: WEIGHT LOSS DIET
     Dosage: 1 TABLET DAILY
     Dates: start: 201312
  4. DEXADOR [Concomitant]
     Indication: PAIN
     Dosage: 2 TABLETS, DAILY
     Dates: start: 20140213
  5. PACO [Concomitant]
     Dosage: 3 TABLETS, DAILY
     Dates: start: 201401

REACTIONS (4)
  - Intervertebral disc protrusion [Unknown]
  - Pain in extremity [Unknown]
  - Gait disturbance [Unknown]
  - Pain [Unknown]
